FAERS Safety Report 13593355 (Version 1)
Quarter: 2017Q2

REPORT INFORMATION
  Report Type: Spontaneous
  Country: US (occurrence: US)
  Receive Date: 20170530
  Receipt Date: 20170530
  Transmission Date: 20170830
  Serious: Yes (Other)
  Sender: FDA-Public Use
  Company Number: US-SMITH AND NEPHEW, INC-2017SMT00349

PATIENT
  Sex: Female

DRUGS (1)
  1. REGRANEX [Suspect]
     Active Substance: BECAPLERMIN
     Dosage: UNK UNK, ONCE
     Route: 061

REACTIONS (3)
  - Osteomyelitis [Unknown]
  - Off label use [Recovered/Resolved]
  - Toe amputation [Recovered/Resolved with Sequelae]
